FAERS Safety Report 4492843-3 (Version None)
Quarter: 2004Q4

REPORT INFORMATION
  Report Type: 
  Country: None (occurrence: None)
  Receive Date: 20041102
  Receipt Date: 20041019
  Transmission Date: 20050328
  Serious: Yes (Hospitalization, Disabling)
  Sender: FDA-Public Use
  Company Number: 2004-00808FE

PATIENT
  Age: 76 Year
  Sex: Female

DRUGS (5)
  1. PENTASA [Suspect]
     Indication: CROHN'S DISEASE
     Dosage: 3 G, ORALLY
     Route: 048
     Dates: start: 20031201, end: 20040801
  2. NICARDIPINE HCL [Concomitant]
  3. FUROSEMIDE [Concomitant]
  4. OMEPRAZOLE [Concomitant]
  5. POTASSIUM CHLORIDE [Concomitant]

REACTIONS (3)
  - DYSPNOEA [None]
  - ORTHOPNOEA [None]
  - PULMONARY TOXICITY [None]
